FAERS Safety Report 6538436-5 (Version None)
Quarter: 2010Q1

REPORT INFORMATION
  Report Type: 
  Country: None (occurrence: None)
  Receive Date: 20100114
  Receipt Date: 20100106
  Transmission Date: 20100710
  Serious: Yes (Other)
  Sender: FDA-Public Use
  Company Number: US-AMGEN-KDL366113

PATIENT
  Sex: Male
  Weight: 117.1 kg

DRUGS (1)
  1. PROCRIT [Suspect]
     Indication: DIALYSIS
     Route: 065

REACTIONS (2)
  - APLASIA PURE RED CELL [None]
  - THERAPEUTIC RESPONSE DECREASED [None]
